FAERS Safety Report 16747349 (Version 3)
Quarter: 2020Q1

REPORT INFORMATION
  Report Type: Report from Study
  Country: CA (occurrence: CA)
  Receive Date: 20190827
  Receipt Date: 20200115
  Transmission Date: 20200409
  Serious: No
  Sender: FDA-Public Use
  Company Number: CA-ROCHE-2387806

PATIENT
  Age: 47 Year
  Sex: Female

DRUGS (17)
  1. GABAPENTIN. [Concomitant]
     Active Substance: GABAPENTIN
     Dosage: NIGHT AND IN MORNING, SOMETIMES AFTERNOON
     Route: 065
  2. NAPROXEN. [Concomitant]
     Active Substance: NAPROXEN
     Dosage: ANTI-INFLAMMATORY
     Route: 065
  3. EFFEXOR [Concomitant]
     Active Substance: VENLAFAXINE HYDROCHLORIDE
  4. ROSUVASTATIN. [Concomitant]
     Active Substance: ROSUVASTATIN
     Route: 065
  5. DILANTIN [Concomitant]
     Active Substance: PHENYTOIN
  6. OCREVUS [Suspect]
     Active Substance: OCRELIZUMAB
     Indication: RELAPSING-REMITTING MULTIPLE SCLEROSIS
     Dosage: 300 MG AT DAY 0 AND 14, THEN 600 MG EVERY 6 MONTH
     Route: 042
     Dates: start: 20190805
  7. ATIVAN [Concomitant]
     Active Substance: LORAZEPAM
     Dosage: TO HELP HER SLEEP?TOOK 0.5MG LAST NIGHT
     Route: 065
  8. COLACE [Concomitant]
     Active Substance: DOCUSATE SODIUM
  9. TELMISARTAN. [Concomitant]
     Active Substance: TELMISARTAN
     Route: 065
  10. METFORMIN [Concomitant]
     Active Substance: METFORMIN HYDROCHLORIDE
     Route: 065
  11. ISOPTIN [Concomitant]
     Active Substance: VERAPAMIL HYDROCHLORIDE
     Route: 065
  12. VENTOLIN [Concomitant]
     Active Substance: ALBUTEROL SULFATE
  13. FLOVENT [Concomitant]
     Active Substance: FLUTICASONE PROPIONATE
  14. BISOPROLOL [Concomitant]
     Active Substance: BISOPROLOL
     Route: 065
  15. LEVOTHYROXINE. [Concomitant]
     Active Substance: LEVOTHYROXINE
     Route: 065
  16. EPIVAL [VALPROATE SEMISODIUM] [Concomitant]
     Route: 065
  17. VENLAFAXINE [Concomitant]
     Active Substance: VENLAFAXINE HYDROCHLORIDE
     Route: 065

REACTIONS (10)
  - Increased upper airway secretion [Not Recovered/Not Resolved]
  - Irritability [Not Recovered/Not Resolved]
  - Insomnia [Not Recovered/Not Resolved]
  - Stomatitis [Recovered/Resolved]
  - Gingival bleeding [Recovered/Resolved]
  - Fatigue [Not Recovered/Not Resolved]
  - Depression [Not Recovered/Not Resolved]
  - Aphthous ulcer [Recovered/Resolved]
  - Oral herpes [Recovered/Resolved]
  - Gingivitis [Recovered/Resolved]

NARRATIVE: CASE EVENT DATE: 20190821
